FAERS Safety Report 7973847-2 (Version None)
Quarter: 2011Q4

REPORT INFORMATION
  Report Type: 
  Country: None (occurrence: None)
  Receive Date: 20111213
  Receipt Date: 20111128
  Transmission Date: 20120403
  Serious: Yes (Other)
  Sender: FDA-Public Use
  Company Number: GB-ARROW GEN-2011-20674

PATIENT
  Age: 22 Year
  Sex: Female

DRUGS (1)
  1. RISPERIDONE [Suspect]
     Indication: LEARNING DISABILITY
     Dosage: 2 MG, UNK
     Route: 048

REACTIONS (1)
  - OCULOGYRIC CRISIS [None]
